FAERS Safety Report 4335751-0 (Version None)
Quarter: 2004Q2

REPORT INFORMATION
  Report Type: 
  Country: None (occurrence: None)
  Receive Date: 20040409
  Receipt Date: 20040401
  Transmission Date: 20050107
  Serious: Yes (Hospitalization, Other)
  Sender: FDA-Public Use
  Company Number: PHNU2004DE01428

PATIENT
  Age: 72 Year
  Sex: Male

DRUGS (2)
  1. DIOVAN [Suspect]
     Dates: start: 20031021
  2. ESIDRIX [Suspect]
     Dates: start: 20031021

REACTIONS (3)
  - MYOCARDIAL INFARCTION [None]
  - POST PROCEDURAL COMPLICATION [None]
  - RENAL TUMOUR EXCISION [None]
